FAERS Safety Report 8302043-4 (Version None)
Quarter: 2012Q2

REPORT INFORMATION
  Report Type: 
  Country: None (occurrence: None)
  Receive Date: 20120420
  Receipt Date: 20120418
  Transmission Date: 20120825
  Serious: Yes (Hospitalization)
  Sender: FDA-Public Use
  Company Number: US-MERCK-1110USA02425

PATIENT
  Age: 56 Year
  Sex: Female
  Weight: 60 kg

DRUGS (4)
  1. FOSAMAX [Suspect]
     Route: 048
     Dates: start: 20000101, end: 20070401
  2. FOSAMAX PLUS D [Suspect]
     Indication: OSTEOPENIA
     Route: 048
     Dates: start: 20070101, end: 20081211
  3. FOSAMAX [Suspect]
     Indication: OSTEOPENIA
     Route: 048
     Dates: start: 19980101, end: 20001101
  4. FOSAMAX PLUS D [Suspect]
     Route: 048
     Dates: start: 20061001, end: 20070101

REACTIONS (15)
  - INFECTION [None]
  - CATARACT [None]
  - DENTAL CARIES [None]
  - ARTHRALGIA [None]
  - TOOTH FRACTURE [None]
  - ADVERSE EVENT [None]
  - TOOTH DISORDER [None]
  - COLONIC POLYP [None]
  - DIVERTICULUM [None]
  - LOW TURNOVER OSTEOPATHY [None]
  - FEMUR FRACTURE [None]
  - FALL [None]
  - OSTEOPOROSIS [None]
  - BLOOD CHOLESTEROL INCREASED [None]
  - VITAMIN D DEFICIENCY [None]
